FAERS Safety Report 4588389-4 (Version None)
Quarter: 2005Q1

REPORT INFORMATION
  Report Type: 
  Country: None (occurrence: None)
  Receive Date: 20050216
  Receipt Date: 20050128
  Transmission Date: 20050727
  Serious: Yes (Hospitalization, Other)
  Sender: FDA-Public Use
  Company Number: USA040566952

PATIENT
  Age: 77 Year
  Sex: Female
  Weight: 59 kg

DRUGS (11)
  1. FORTEO [Suspect]
     Indication: OSTEOPOROSIS
     Dosage: 20 UG/1 DAY
     Dates: start: 20040412
  2. ZOLOFT [Concomitant]
  3. LEXAPRO [Concomitant]
  4. VITAMIN E [Concomitant]
  5. FOSAMAX [Concomitant]
  6. CITRACAL + D [Concomitant]
  7. MULTI-VITAMIN [Concomitant]
  8. EXTRA STRENGTH TYLENOL [Concomitant]
  9. IRON [Concomitant]
  10. DARVOCET-N 100 [Concomitant]
  11. PRAVACHOL [Concomitant]

REACTIONS (11)
  - ASTHENIA [None]
  - CONSTIPATION [None]
  - FALL [None]
  - HIP FRACTURE [None]
  - INJECTION SITE HAEMORRHAGE [None]
  - INJECTION SITE REACTION [None]
  - PHARMACEUTICAL PRODUCT COMPLAINT [None]
  - SCRATCH [None]
  - UPPER LIMB FRACTURE [None]
  - WEIGHT DECREASED [None]
  - WEIGHT INCREASED [None]
